FAERS Safety Report 6817631-1 (Version None)
Quarter: 2010Q3

REPORT INFORMATION
  Report Type: 
  Country: None (occurrence: None)
  Receive Date: 20100706
  Receipt Date: 20100706
  Transmission Date: 20110219
  Serious: Yes (Other)
  Sender: FDA-Public Use
  Company Number: US-JNJFOC-20091102659

PATIENT
  Sex: Female
  Weight: 65.77 kg

DRUGS (11)
  1. LEVAQUIN [Suspect]
     Indication: SINUSITIS
     Route: 048
     Dates: start: 20091105, end: 20091106
  2. ULTRAM [Concomitant]
     Indication: CYSTITIS INTERSTITIAL
     Route: 048
  3. VALIUM [Concomitant]
     Indication: CYSTITIS INTERSTITIAL
     Route: 048
  4. VISTARIL [Concomitant]
     Indication: CYSTITIS INTERSTITIAL
     Dosage: 25 TO 75 MG
     Route: 048
  5. RESTASIS [Concomitant]
     Route: 047
  6. TAGAMET [Concomitant]
     Route: 065
  7. TRAMADOL HYDROCHLORIDE [Concomitant]
     Route: 065
  8. DIAZEPAM [Concomitant]
     Route: 065
  9. HYDROXYZINE EMBONATE [Concomitant]
     Route: 065
  10. CYCLOSPORINE [Concomitant]
     Route: 065
  11. CIMETIDINE [Concomitant]
     Route: 065

REACTIONS (4)
  - BLOOD PRESSURE INCREASED [None]
  - CARDIAC FLUTTER [None]
  - CHEST PAIN [None]
  - HEART RATE INCREASED [None]
